FAERS Safety Report 5784001-7 (Version None)
Quarter: 2008Q2

REPORT INFORMATION
  Report Type: 
  Country: None (occurrence: None)
  Receive Date: 20080605
  Receipt Date: 20080417
  Transmission Date: 20081010
  Serious: No
  Sender: FDA-Public Use
  Company Number: A0717991A

PATIENT
  Sex: Female
  Weight: 72 kg

DRUGS (1)
  1. ALLI [Suspect]
     Dates: start: 20080114

REACTIONS (5)
  - DRUG INEFFECTIVE [None]
  - GASTROINTESTINAL DISORDER [None]
  - HUNGER [None]
  - INCREASED APPETITE [None]
  - MUSCLE SPASMS [None]
